FAERS Safety Report 5048976-6 (Version None)
Quarter: 2006Q3

REPORT INFORMATION
  Report Type: 
  Country: None (occurrence: None)
  Receive Date: 20060712
  Receipt Date: 20051027
  Transmission Date: 20061208
  Serious: No
  Sender: FDA-Public Use
  Company Number: US-GLAXOSMITHKLINE-A0579935A

PATIENT
  Age: 43 Year
  Sex: Female

DRUGS (15)
  1. IMITREX [Suspect]
     Indication: CLUSTER HEADACHE
     Dosage: 50MG AS REQUIRED
     Route: 048
     Dates: start: 20030101
  2. UNKNOWN MEDICATION [Concomitant]
  3. ADVAIR DISKUS 100/50 [Concomitant]
  4. EYE DROPS [Concomitant]
  5. NASONEX [Concomitant]
  6. PREVACID [Concomitant]
  7. ZANTAC [Concomitant]
  8. EFFEXOR XR [Concomitant]
  9. ZOLOFT [Concomitant]
  10. TOPAMAX [Concomitant]
  11. ATIVAN [Concomitant]
  12. ESTRADIOL [Concomitant]
  13. PRED FORTE [Concomitant]
  14. TRAMADOL HCL [Concomitant]
  15. DARVOCET-N 100 [Concomitant]

REACTIONS (1)
  - SOMNOLENCE [None]
